FAERS Safety Report 7912804-9 (Version None)
Quarter: 2011Q4

REPORT INFORMATION
  Report Type: 
  Country: None (occurrence: None)
  Receive Date: 20111114
  Receipt Date: 20111102
  Transmission Date: 20120403
  Serious: Yes (Death, Hospitalization)
  Sender: FDA-Public Use
  Company Number: US-GLAXOSMITHKLINE-A0931518A

PATIENT
  Age: 53 Year
  Sex: Male
  Weight: 113.6 kg

DRUGS (2)
  1. AVANDIA [Suspect]
     Indication: DIABETES MELLITUS
     Dosage: 4MG PER DAY
     Route: 048
     Dates: start: 20061116, end: 20061201
  2. AVANDARYL [Suspect]
     Indication: DIABETES MELLITUS
     Route: 048
     Dates: start: 20061201, end: 20070529

REACTIONS (20)
  - FATIGUE [None]
  - PERICARDIAL EFFUSION [None]
  - PULMONARY CONGESTION [None]
  - PAIN [None]
  - CARDIAC ARREST [None]
  - ARTERIOSCLEROSIS [None]
  - ECONOMIC PROBLEM [None]
  - CARDIOMEGALY [None]
  - INJURY [None]
  - ARTERIAL OCCLUSIVE DISEASE [None]
  - MYOCARDIAL HAEMORRHAGE [None]
  - HEPATOMEGALY [None]
  - HYPERTENSION [None]
  - VENTRICULAR FIBRILLATION [None]
  - APNOEA [None]
  - HYPERTENSIVE CARDIOMYOPATHY [None]
  - UNRESPONSIVE TO STIMULI [None]
  - VENTRICULAR TACHYCARDIA [None]
  - HEPATIC STEATOSIS [None]
  - MYOCARDIAL INFARCTION [None]
